FAERS Safety Report 24093649 (Version 1)
Quarter: 2024Q3

REPORT INFORMATION
  Report Type: Spontaneous
  Country: US (occurrence: US)
  Receive Date: 20240715
  Receipt Date: 20240715
  Transmission Date: 20241016
  Serious: No
  Sender: PRINSTON PHARMACEUTICAL
  Company Number: US-PRINSTON PHARMACEUTICAL INC.-2023PRN00368

PATIENT
  Sex: Female
  Weight: 81.633 kg

DRUGS (13)
  1. BUPROPION HYDROCHLORIDE [Suspect]
     Active Substance: BUPROPION HYDROCHLORIDE
     Indication: Migraine
     Dosage: 150 MG, 2X/DAY
     Route: 048
     Dates: end: 20230717
  2. BUPROPION HYDROCHLORIDE [Suspect]
     Active Substance: BUPROPION HYDROCHLORIDE
     Indication: Anxiety
     Dosage: 150 MG, 2X/DAY
     Route: 048
     Dates: start: 20230719
  3. TRIAMTERENE [Concomitant]
     Active Substance: TRIAMTERENE
     Dosage: UNK
  4. TRAZODONE [Concomitant]
     Active Substance: TRAZODONE HYDROCHLORIDE
     Dosage: UNK
  5. PRILOSEC [Concomitant]
     Active Substance: OMEPRAZOLE MAGNESIUM
     Dosage: UNK
  6. VITAMINS [Concomitant]
     Active Substance: VITAMINS
  7. PROBIOTICS NOS [Concomitant]
     Active Substance: PROBIOTICS NOS
  8. COLLAGEN AND BIOTIN [Concomitant]
     Dosage: UNK
  9. VITAMIN D NOS [Concomitant]
     Active Substance: CHOLECALCIFEROL\ERGOCALCIFEROL
     Dosage: UNK
  10. TIZANIDINE [Concomitant]
     Active Substance: TIZANIDINE
     Dosage: UNK
  11. PROGESTERONE [Concomitant]
     Active Substance: PROGESTERONE
     Dosage: UNK
  12. ESTROGENS [Concomitant]
     Active Substance: ESTROGENS
     Dosage: UNK
  13. BIOTIN [Concomitant]
     Active Substance: BIOTIN
     Dosage: UNK

REACTIONS (4)
  - Alopecia [Not Recovered/Not Resolved]
  - Intentional dose omission [Recovered/Resolved]
  - Off label use [Not Recovered/Not Resolved]
  - Product odour abnormal [Not Recovered/Not Resolved]

NARRATIVE: CASE EVENT DATE: 20220101
